FAERS Safety Report 5941510-5 (Version None)
Quarter: 2008Q4

REPORT INFORMATION
  Report Type: 
  Country: None (occurrence: None)
  Receive Date: 20081103
  Receipt Date: 20081103
  Transmission Date: 20090506
  Serious: Yes (Hospitalization)
  Sender: FDA-Public Use
  Company Number: None

PATIENT
  Sex: Male
  Weight: 110.2241 kg

DRUGS (1)
  1. SUTENT [Suspect]
     Indication: GASTROINTESTINAL STROMAL TUMOUR
     Dosage: 37.5 MG ONCE DAILY PO
     Route: 048
     Dates: start: 20080710, end: 20081004

REACTIONS (7)
  - ARTHRALGIA [None]
  - ERYTHEMA [None]
  - FATIGUE [None]
  - INGROWING NAIL [None]
  - NAUSEA [None]
  - PAIN IN EXTREMITY [None]
  - SWELLING [None]
